FAERS Safety Report 7455773-0 (Version None)
Quarter: 2011Q2

REPORT INFORMATION
  Report Type: 
  Country: None (occurrence: None)
  Receive Date: 20110503
  Receipt Date: 20110427
  Transmission Date: 20111010
  Serious: Yes (Other)
  Sender: FDA-Public Use
  Company Number: US-PFIZER INC-2011091124

PATIENT
  Sex: Male
  Weight: 56.689 kg

DRUGS (1)
  1. ADVIL LIQUI-GELS [Suspect]
     Dosage: 400 MG, 4X/DAY
     Route: 048
     Dates: start: 20110301, end: 20110401

REACTIONS (2)
  - BLOOD CREATINE INCREASED [None]
  - CYSTITIS INTERSTITIAL [None]
